FAERS Safety Report 24903078 (Version 1)
Quarter: 2025Q1

REPORT INFORMATION
  Report Type: Spontaneous
  Country: US (occurrence: US)
  Receive Date: 20250130
  Receipt Date: 20250130
  Transmission Date: 20250409
  Serious: No
  Sender: ROCHE
  Company Number: US-ROCHE-10000191918

PATIENT
  Sex: Male

DRUGS (1)
  1. XOLAIR [Suspect]
     Active Substance: OMALIZUMAB
     Indication: Asthma
     Dosage: MORE DOSAGE INFORMATION, LAST DOSE 08-JAN-2025
     Route: 058

REACTIONS (1)
  - Blood glucose decreased [Not Recovered/Not Resolved]
